FAERS Safety Report 7487310-9 (Version None)
Quarter: 2011Q2

REPORT INFORMATION
  Report Type: 
  Country: None (occurrence: None)
  Receive Date: 20110518
  Receipt Date: 20110221
  Transmission Date: 20111010
  Serious: Yes (Death)
  Sender: FDA-Public Use
  Company Number: JP-BAYER-2010-006515

PATIENT
  Age: 82 Year
  Sex: Female
  Weight: 76 kg

DRUGS (8)
  1. NEXAVAR [Suspect]
     Indication: HEPATIC NEOPLASM MALIGNANT
     Dosage: 200 MG, QOD
     Route: 048
     Dates: start: 20101206, end: 20101210
  2. NITRODERM [Concomitant]
     Indication: ANGINA PECTORIS
     Dosage: DAILY DOSE 25 MG
     Route: 062
     Dates: end: 20101210
  3. ASPIRIN [Concomitant]
     Indication: CEREBROVASCULAR ACCIDENT PROPHYLAXIS
     Dosage: DAILY DOSE 100 MG
     Route: 048
     Dates: end: 20101210
  4. NORVASC [Concomitant]
     Indication: HYPERTENSION
     Dosage: DAILY DOSE 5 MG
     Route: 048
     Dates: end: 20101210
  5. PLAVIX [Concomitant]
     Indication: CEREBROVASCULAR ACCIDENT PROPHYLAXIS
     Dosage: DAILY DOSE 75 MG
     Route: 048
     Dates: end: 20101210
  6. CANDESARTAN CILEXETIL [Concomitant]
     Indication: HYPERTENSION
     Dosage: DAILY DOSE 12 MG
     Route: 048
  7. ACTOS [Concomitant]
     Indication: DIABETES MELLITUS
     Dosage: DAILY DOSE 15 MG
     Route: 048
     Dates: end: 20101210
  8. ALDACTONE [Concomitant]
     Indication: OEDEMA
     Dosage: DAILY DOSE 25 MG
     Route: 048
     Dates: end: 20101210

REACTIONS (3)
  - MYOCARDIAL ISCHAEMIA [None]
  - CEREBROVASCULAR ACCIDENT [None]
  - GASTROINTESTINAL HAEMORRHAGE [None]
